FAERS Safety Report 20595870 (Version 1)
Quarter: 2022Q1

REPORT INFORMATION
  Report Type: Spontaneous
  Country: DE (occurrence: DE)
  Receive Date: 20220315
  Receipt Date: 20220315
  Transmission Date: 20220423
  Serious: Yes (Death, Hospitalization, Other)
  Sender: FDA-Public Use
  Company Number: DE-PEI-CADR2022259299

PATIENT
  Age: 65 Year
  Sex: Female
  Weight: 120 kg

DRUGS (3)
  1. METHOTREXATE [Suspect]
     Active Substance: METHOTREXATE
     Indication: Rheumatic disorder
     Dosage: 10 MILLIGRAM, QW
     Dates: start: 202109
  2. COMIRNATY [Concomitant]
     Active Substance: TOZINAMERAN
     Indication: Immunisation
     Dosage: UNK (3)
     Dates: start: 20211127
  3. APIXABAN [Concomitant]
     Active Substance: APIXABAN
     Indication: Anticoagulant therapy
     Dosage: UNK
     Dates: start: 202103

REACTIONS (10)
  - Death [Fatal]
  - Multiple organ dysfunction syndrome [Unknown]
  - Sepsis [Unknown]
  - Myelosuppression [Unknown]
  - Acute respiratory distress syndrome [Unknown]
  - Vaginal haemorrhage [Unknown]
  - Anaemia [Unknown]
  - Dyspnoea [Unknown]
  - Asthenia [Unknown]
  - Toxicity to various agents [Unknown]

NARRATIVE: CASE EVENT DATE: 20211205
